FAERS Safety Report 14399983 (Version 2)
Quarter: 2018Q1

REPORT INFORMATION
  Report Type: Spontaneous
  Country: US (occurrence: US)
  Receive Date: 20180117
  Receipt Date: 20180125
  Transmission Date: 20180509
  Serious: Yes (Other)
  Sender: FDA-Public Use
  Company Number: US-JNJFOC-20171231793

PATIENT
  Sex: Female
  Weight: 58.97 kg

DRUGS (3)
  1. XARELTO [Suspect]
     Active Substance: RIVAROXABAN
     Indication: DEEP VEIN THROMBOSIS
     Route: 048
     Dates: start: 20171220
  2. IRON [Concomitant]
     Active Substance: IRON
     Indication: MENOPAUSE
     Route: 065
     Dates: start: 2016
  3. XARELTO [Suspect]
     Active Substance: RIVAROXABAN
     Indication: DEEP VEIN THROMBOSIS
     Route: 048
     Dates: start: 20171129, end: 20171219

REACTIONS (2)
  - Menorrhagia [Not Recovered/Not Resolved]
  - Urine abnormality [Unknown]

NARRATIVE: CASE EVENT DATE: 2017
